FAERS Safety Report 18200119 (Version 1)
Quarter: 2020Q3

REPORT INFORMATION
  Report Type: Spontaneous
  Country: US (occurrence: US)
  Receive Date: 20200826
  Receipt Date: 20200826
  Transmission Date: 20201103
  Serious: No
  Sender: FDA-Public Use
  Company Number: US-BAUSCH-BL-2020-023305

PATIENT
  Sex: Male

DRUGS (3)
  1. APLENZIN [Suspect]
     Active Substance: BUPROPION HYDROBROMIDE
     Indication: PRODUCT USED FOR UNKNOWN INDICATION
     Dosage: STARTED WITHIN THE LAST COUPLE OF WEEKS
     Route: 048
     Dates: start: 2020, end: 2020
  2. APLENZIN [Suspect]
     Active Substance: BUPROPION HYDROBROMIDE
     Dosage: DOSE REDUCED
     Route: 048
     Dates: start: 2020
  3. APLENZIN [Suspect]
     Active Substance: BUPROPION HYDROBROMIDE
     Dosage: DOSE TITRATED
     Route: 048
     Dates: start: 2020, end: 2020

REACTIONS (1)
  - Headache [Recovered/Resolved]

NARRATIVE: CASE EVENT DATE: 2020
